FAERS Safety Report 17653193 (Version 2)
Quarter: 2020Q2

REPORT INFORMATION
  Report Type: Spontaneous
  Country: US (occurrence: US)
  Receive Date: 20200409
  Receipt Date: 20200423
  Transmission Date: 20200713
  Serious: No
  Sender: FDA-Public Use
  Company Number: US-CELGENEUS-USA-20200401458

PATIENT
  Age: 61 Year
  Sex: Male

DRUGS (3)
  1. FLUTICASONE. [Concomitant]
     Active Substance: FLUTICASONE
     Indication: PSORIASIS
     Dosage: 2 WEEKS, AS NEEDED
     Route: 061
     Dates: start: 20200410
  2. OTEZLA [Suspect]
     Active Substance: APREMILAST
     Indication: PSORIASIS
     Dosage: 60 MILLIGRAM
     Route: 048
     Dates: start: 20200314
  3. OTEZLA [Suspect]
     Active Substance: APREMILAST
     Dosage: STARTER DOSE
     Route: 048
     Dates: start: 202003, end: 20200320

REACTIONS (1)
  - Upper respiratory tract infection [Recovering/Resolving]

NARRATIVE: CASE EVENT DATE: 20200314
